FAERS Safety Report 8611354-4 (Version None)
Quarter: 2012Q3

REPORT INFORMATION
  Report Type: 
  Country: None (occurrence: None)
  Receive Date: 20120807
  Receipt Date: 20120726
  Transmission Date: 20120928
  Serious: Yes (Other)
  Sender: FDA-Public Use
  Company Number: 2012SA049685

PATIENT
  Age: 62 Year
  Sex: Male
  Weight: 90 kg

DRUGS (1)
  1. CAPZASIN/UNKNOWN/UNKNOWN [Suspect]
     Indication: PAIN
     Dosage: ONCE; TOPICAL
     Route: 061
     Dates: start: 20120623, end: 20120623

REACTIONS (2)
  - INSOMNIA [None]
  - APPLICATION SITE BURN [None]
